FAERS Safety Report 6527931-0 (Version None)
Quarter: 2009Q4

REPORT INFORMATION
  Report Type: 
  Country: None (occurrence: None)
  Receive Date: 20091229
  Receipt Date: 20091223
  Transmission Date: 20100525
  Serious: Yes (Death)
  Sender: FDA-Public Use
  Company Number: 2009SP043227

PATIENT
  Age: 70 Year
  Sex: Male

DRUGS (1)
  1. TEMOZOLOMIDE [Suspect]
     Indication: PITUITARY TUMOUR BENIGN
     Dosage: 200 MG; QD; PO
     Route: 048

REACTIONS (4)
  - DEHYDRATION [None]
  - DIARRHOEA [None]
  - PULMONARY EMBOLISM [None]
  - TUMOUR NECROSIS [None]
